FAERS Safety Report 13813015 (Version 2)
Quarter: 2018Q1

REPORT INFORMATION
  Report Type: Spontaneous
  Country: JP (occurrence: JP)
  Receive Date: 20170729
  Receipt Date: 20180124
  Transmission Date: 20180508
  Serious: Yes (Hospitalization, Other)
  Sender: FDA-Public Use
  Company Number: JP-ACCORD-056183

PATIENT
  Age: 51 Year
  Sex: Male

DRUGS (5)
  1. TACROLIMUS. [Suspect]
     Active Substance: TACROLIMUS
     Indication: COLITIS ULCERATIVE
  2. NITROGLYCERIN. [Concomitant]
     Active Substance: NITROGLYCERIN
     Dosage: SUBLINGUAL NITROGLYCERIN
  3. NICORANDIL [Concomitant]
     Active Substance: NICORANDIL
     Indication: ARTERIOSPASM CORONARY
     Route: 048
  4. NIFEDIPINE. [Interacting]
     Active Substance: NIFEDIPINE
     Indication: ARTERIOSPASM CORONARY
     Route: 048
  5. ISOSORBIDE. [Concomitant]
     Active Substance: ISOSORBIDE
     Indication: ARTERIOSPASM CORONARY
     Route: 048

REACTIONS (4)
  - Drug interaction [Unknown]
  - Condition aggravated [Recovering/Resolving]
  - Drug level increased [Unknown]
  - Myocardial ischaemia [Recovered/Resolved]
